FAERS Safety Report 7676915-8 (Version None)
Quarter: 2011Q3

REPORT INFORMATION
  Report Type: 
  Country: None (occurrence: None)
  Receive Date: 20110811
  Receipt Date: 20110803
  Transmission Date: 20111222
  Serious: Yes (Hospitalization)
  Sender: FDA-Public Use
  Company Number: PHEH2011US00693

PATIENT
  Sex: Female

DRUGS (1)
  1. TOBI [Suspect]
     Indication: LUNG DISORDER
     Dosage: 300 MG, BID
     Dates: start: 20110730, end: 20110801

REACTIONS (1)
  - PNEUMONIA [None]
